FAERS Safety Report 5073225-2 (Version None)
Quarter: 2006Q3

REPORT INFORMATION
  Report Type: 
  Country: None (occurrence: None)
  Receive Date: 20060802
  Receipt Date: 20060718
  Transmission Date: 20061208
  Serious: Yes (Death, Other)
  Sender: FDA-Public Use
  Company Number: US-2006-002613

PATIENT
  Age: 50 Year
  Sex: Female

DRUGS (2)
  1. BETASERON [Suspect]
     Indication: PROGRESSIVE MULTIPLE SCLEROSIS
     Dosage: SUBCUTANEOUS
     Route: 058
     Dates: start: 19940613, end: 20030101
  2. BACLOFEN [Concomitant]

REACTIONS (5)
  - MUSCULAR WEAKNESS [None]
  - OESOPHAGEAL DISORDER [None]
  - PULMONARY OEDEMA [None]
  - RESPIRATORY DISORDER [None]
  - RESPIRATORY TRACT INFECTION [None]
